FAERS Safety Report 25853206 (Version 1)
Quarter: 2025Q3

REPORT INFORMATION
  Report Type: Spontaneous
  Country: US (occurrence: None)
  Receive Date: 20250925
  Receipt Date: 20250925
  Transmission Date: 20251020
  Serious: Yes (Other)
  Sender: FDA-CTU
  Company Number: None

PATIENT
  Age: 15 Year
  Sex: Male
  Weight: 50.7 kg

DRUGS (2)
  1. NGENLA [Suspect]
     Active Substance: SOMATROGON-GHLA
     Indication: Growth hormone deficiency
     Route: 058
     Dates: start: 20250801, end: 20250829
  2. ANASTROZOLE [Concomitant]
     Active Substance: ANASTROZOLE
     Dates: start: 20250411

REACTIONS (5)
  - Oedema peripheral [None]
  - Oedema peripheral [None]
  - Face oedema [None]
  - Therapy interrupted [None]
  - Headache [None]

NARRATIVE: CASE EVENT DATE: 20250925
